FAERS Safety Report 6213446-6 (Version None)
Quarter: 2009Q2

REPORT INFORMATION
  Report Type: 
  Country: None (occurrence: None)
  Receive Date: 20090603
  Receipt Date: 20090526
  Transmission Date: 20091009
  Serious: Yes (Other)
  Sender: FDA-Public Use
  Company Number: ZA-BAYER-200921753GPV

PATIENT
  Age: 35 Year
  Sex: Female

DRUGS (1)
  1. AVELON [Suspect]
     Indication: SINUSITIS
     Dosage: TOTAL DAILY DOSE: 400 MG  UNIT DOSE: 400 MG
     Route: 048
     Dates: start: 20090523, end: 20090523

REACTIONS (7)
  - CHILLS [None]
  - DIZZINESS [None]
  - DYSPNOEA [None]
  - EAR CONGESTION [None]
  - ERYTHEMA [None]
  - HYPERSENSITIVITY [None]
  - RASH [None]
